FAERS Safety Report 20142640 (Version 1)
Quarter: 2021Q4

REPORT INFORMATION
  Report Type: Spontaneous
  Country: US (occurrence: US)
  Receive Date: 20211202
  Receipt Date: 20211202
  Transmission Date: 20220304
  Serious: Yes (Other)
  Sender: FDA-Public Use
  Company Number: US-SEAGEN-2021SGN06168

PATIENT
  Age: 16 Year

DRUGS (1)
  1. ADCETRIS [Suspect]
     Active Substance: BRENTUXIMAB VEDOTIN
     Indication: Hodgkin^s disease
     Dosage: 1.8 MG/KG, Q3WEEKS
     Route: 042

REACTIONS (3)
  - Peripheral sensorimotor neuropathy [Recovered/Resolved]
  - Ocular icterus [Unknown]
  - Off label use [Unknown]
